FAERS Safety Report 25154697 (Version 1)
Quarter: 2025Q2

REPORT INFORMATION
  Report Type: Spontaneous
  Country: US (occurrence: None)
  Receive Date: 20250402
  Receipt Date: 20250402
  Transmission Date: 20250717
  Serious: No
  Sender: FDA-CTU
  Company Number: None

PATIENT
  Age: 3 Year
  Sex: Female

DRUGS (1)
  1. DUPIXENT [Suspect]
     Active Substance: DUPILUMAB
     Indication: Dermatitis atopic
     Route: 058
     Dates: start: 20240115

REACTIONS (5)
  - Insomnia [None]
  - Dry eye [None]
  - Groin pain [None]
  - Agitation [None]
  - Dyspnoea [None]

NARRATIVE: CASE EVENT DATE: 20250115
